FAERS Safety Report 9870913 (Version 1)
Quarter: 2014Q1

REPORT INFORMATION
  Report Type: Spontaneous
  Country: US (occurrence: None)
  Receive Date: 20140204
  Receipt Date: 20140204
  Transmission Date: 20141002
  Serious: Yes (Hospitalization)
  Sender: FDA-Public Use
  Company Number: None

PATIENT
  Age: 88 Year
  Sex: Male

DRUGS (1)
  1. ZYTIGA [Suspect]
     Indication: PROSTATE CANCER
     Dosage: ZYTIGA 1000MG  DAILY  ORAL
     Route: 048
     Dates: start: 20140109, end: 20140125

REACTIONS (15)
  - Somnolence [None]
  - Headache [None]
  - Dizziness [None]
  - Vision blurred [None]
  - Pain in extremity [None]
  - Local swelling [None]
  - Chest pain [None]
  - Chills [None]
  - Oropharyngeal pain [None]
  - Eye irritation [None]
  - Sinus disorder [None]
  - Dry mouth [None]
  - Thirst [None]
  - Respiratory tract infection [None]
  - Cardiac failure congestive [None]
